FAERS Safety Report 9687979 (Version 3)
Quarter: 2014Q1

REPORT INFORMATION
  Report Type: Spontaneous
  Country: IT (occurrence: None)
  Receive Date: 20131112
  Receipt Date: 20140110
  Transmission Date: 20141002
  Serious: Yes (Hospitalization)
  Sender: FDA-Public Use
  Company Number: 1992115

PATIENT
  Age: 17 Year
  Sex: Female
  Weight: 60 kg

DRUGS (5)
  1. CYTARABINE [Suspect]
     Indication: ACUTE MYELOID LEUKAEMIA
     Dosage: 6 G/M^2, CYCLICAL
     Route: 042
     Dates: start: 20130927, end: 20130929
  2. ETOPOSIDE TEVA [Suspect]
     Indication: ACUTE MYELOID LEUKAEMIA
     Dosage: CYCLICAL
     Route: 042
     Dates: start: 20130928, end: 20131001
  3. ARACYTIN [Suspect]
     Indication: ACUTE MYELOID LEUKAEMIA
     Dosage: CYCLICAL
     Route: 037
     Dates: start: 20130926, end: 20131001
  4. (ZANTAC) [Concomitant]
  5. (ONDANSETRON HIKMA) [Concomitant]

REACTIONS (1)
  - Febrile bone marrow aplasia [None]
